FAERS Safety Report 13153321 (Version 1)
Quarter: 2017Q1

REPORT INFORMATION
  Report Type: Report from Study
  Country: US (occurrence: US)
  Receive Date: 20170126
  Receipt Date: 20170126
  Transmission Date: 20170428
  Serious: Yes (Other)
  Sender: FDA-Public Use
  Company Number: US-AMGEN-USASL2017012347

PATIENT
  Age: 67 Year
  Sex: Male

DRUGS (1)
  1. REPATHA [Suspect]
     Active Substance: EVOLOCUMAB
     Indication: HYPERCHOLESTEROLAEMIA
     Dosage: 140 MG/2 MONTH
     Route: 065
     Dates: start: 201601, end: 201611

REACTIONS (2)
  - Off label use [Unknown]
  - Penile haemorrhage [Unknown]

NARRATIVE: CASE EVENT DATE: 2016
